FAERS Safety Report 19010675 (Version 8)
Quarter: 2021Q3

REPORT INFORMATION
  Report Type: Report from Study
  Country: CA (occurrence: CA)
  Receive Date: 20210315
  Receipt Date: 20210713
  Transmission Date: 20211014
  Serious: Yes (Other)
  Sender: FDA-Public Use
  Company Number: CA-OTSUKA-2021_007037

PATIENT
  Age: 86 Year
  Sex: Female
  Weight: 53.2 kg

DRUGS (5)
  1. CEDAZURIDINE AND DECITABINE [Suspect]
     Active Substance: CEDAZURIDINE\DECITABINE
     Dosage: (35 MG DECITABINE AND 100 MG CEDAZURIDINE), QD DAYS 1, 3, AND 5 EVERY 28 DAY CYCLE
     Route: 065
  2. CEDAZURIDINE AND DECITABINE [Suspect]
     Active Substance: CEDAZURIDINE\DECITABINE
     Dosage: (35 MG DECITABINE AND 100 MG CEDAZURIDINE), QD (4 DAYS PER CYCLE)UNK
     Route: 065
  3. CEDAZURIDINE AND DECITABINE [Suspect]
     Active Substance: CEDAZURIDINE\DECITABINE
     Indication: MYELODYSPLASTIC SYNDROME
     Dosage: (35 MG OF DECITABINE AND 100 MG OF CEDAZURIDINE)
     Route: 048
     Dates: start: 20210211
  4. CEDAZURIDINE AND DECITABINE [Suspect]
     Active Substance: CEDAZURIDINE\DECITABINE
     Dosage: (35 MG DECITABINE AND 100 MG CEDAZURIDINE), QD DAYS 1?3 OF A 28 DAY CYCLE
     Route: 048
  5. SYNTHROID [Concomitant]
     Active Substance: LEVOTHYROXINE SODIUM
     Indication: PRODUCT USED FOR UNKNOWN INDICATION
     Dosage: 100 MG, QD
     Route: 048

REACTIONS (5)
  - Transfusion [Unknown]
  - Dizziness [Recovering/Resolving]
  - Haemoglobin abnormal [Unknown]
  - Impaired quality of life [Unknown]
  - Nausea [Unknown]

NARRATIVE: CASE EVENT DATE: 20210214
